FAERS Safety Report 6425026-8 (Version None)
Quarter: 2009Q4

REPORT INFORMATION
  Report Type: 
  Country: None (occurrence: None)
  Receive Date: 20091030
  Receipt Date: 20091030
  Transmission Date: 20100525
  Serious: No
  Sender: FDA-Public Use
  Company Number: None

PATIENT
  Age: 50 Year
  Sex: Male
  Weight: 68.0396 kg

DRUGS (1)
  1. DOXYCYCLINE HYCLATE [Suspect]
     Indication: LYME DISEASE
     Dosage: 100 MG TAB 1 TAB TWICE DAILY
     Dates: start: 20090922

REACTIONS (2)
  - ARTHRALGIA [None]
  - STEVENS-JOHNSON SYNDROME [None]
